FAERS Safety Report 19628525 (Version 1)
Quarter: 2021Q3

REPORT INFORMATION
  Report Type: Spontaneous
  Country: DE (occurrence: DE)
  Receive Date: 20210728
  Receipt Date: 20210728
  Transmission Date: 20211014
  Serious: Yes (Other)
  Sender: FDA-Public Use
  Company Number: DE-PFIZER INC-2021886559

PATIENT
  Sex: Female

DRUGS (8)
  1. VENLAFAXINE HCL [Suspect]
     Active Substance: VENLAFAXINE HYDROCHLORIDE
     Dosage: 75 MG, 1X/DAY  (FOR THE TIME BEING)
     Dates: start: 20200301
  2. OLANZAPIN [Suspect]
     Active Substance: OLANZAPINE
     Dosage: 7.5 MG, 1X/DAY
     Dates: start: 20200713, end: 20200719
  3. OLANZAPIN [Suspect]
     Active Substance: OLANZAPINE
     Dosage: 5 MG, 1X/DAY
     Dates: start: 20200720, end: 20200726
  4. VENLAFAXIN PFIZER RETARD [Suspect]
     Active Substance: VENLAFAXINE HYDROCHLORIDE
     Dosage: 300 MG, 1X/DAY (FOR THE TIME BEING)
     Dates: start: 20200301
  5. OLANZAPIN [Suspect]
     Active Substance: OLANZAPINE
     Indication: SLEEP DISORDER
     Dosage: 10 MG, 1X/DAY
     Dates: start: 20200623, end: 20200712
  6. OLANZAPIN [Suspect]
     Active Substance: OLANZAPINE
     Dosage: 2.5 MG, 1X/DAY
     Dates: start: 20200727, end: 20200730
  7. OLANZAPIN [Suspect]
     Active Substance: OLANZAPINE
     Indication: THINKING ABNORMAL
     Dosage: 7.5 MG, 1X/DAY
     Dates: start: 20200301, end: 20200622
  8. MONTELUKAST [Concomitant]
     Active Substance: MONTELUKAST SODIUM
     Dosage: 10 MG, 1X/DAY (TAKING FOR YEARS, FOR THE TIME BEING)

REACTIONS (4)
  - Restlessness [Unknown]
  - Anxiety [Unknown]
  - Food craving [Recovering/Resolving]
  - Weight increased [Recovering/Resolving]

NARRATIVE: CASE EVENT DATE: 2020
